FAERS Safety Report 9338949 (Version 1)
Quarter: 2013Q2

REPORT INFORMATION
  Report Type: Spontaneous
  Country: GB (occurrence: GB)
  Receive Date: 20130610
  Receipt Date: 20130610
  Transmission Date: 20140414
  Serious: Yes (Death)
  Sender: FDA-Public Use
  Company Number: PHHY2013GB011749

PATIENT
  Age: 54 Year
  Sex: Male

DRUGS (20)
  1. AMISULPRIDE [Suspect]
  2. AMITRIPTYLINE [Suspect]
     Indication: OVERDOSE
     Dosage: 5 DF, ONCE/SINGLE
     Dates: start: 20120623, end: 20120623
  3. DIAZEPAM [Concomitant]
     Dosage: 4 DF, BID
  4. ZOPICLONE [Concomitant]
     Dosage: 2 DF, AT NIGHT
  5. PROCYCLIDINE [Concomitant]
     Dosage: 0.5 DF
  6. TRAMADOL/PARACETAMOL [Concomitant]
     Dosage: 2 DF, QID
  7. SERETIDE [Concomitant]
     Dosage: 1 DF, BID
  8. VENTOLIN [Concomitant]
     Dosage: 200 UG
  9. DEPAKOTE [Concomitant]
     Dosage: 250 MG, BID
  10. DEPAKOTE [Concomitant]
     Dosage: 500 MG, BID
  11. SIMVASTATIN [Concomitant]
     Dosage: 40 MG, QD
  12. ASPIRIN [Concomitant]
     Dosage: 75 MG, QD
  13. CANDESARTAN [Concomitant]
     Dosage: 8 MG, QD
  14. SENNA [Concomitant]
     Dosage: 7.5 MG, 2 AT NIGHT
  15. EZETROL [Concomitant]
     Dosage: 10 MG, QD
  16. GLICLAZIDE [Concomitant]
     Dosage: 80 MG, BID
  17. DULOXETINE HYDROCHLORIDE [Concomitant]
     Dosage: 60 MG, QD
  18. GLUCOPHAGE [Concomitant]
     Dosage: 500 MG, BID
  19. SILDENAFIL [Concomitant]
     Dosage: 100 MG
  20. LACTULOSE [Concomitant]
     Dosage: 15 ML, BID
     Route: 048

REACTIONS (1)
  - Death [Fatal]
